FAERS Safety Report 8358815-3 (Version None)
Quarter: 2012Q2

REPORT INFORMATION
  Report Type: 
  Country: None (occurrence: None)
  Receive Date: 20120514
  Receipt Date: 20120502
  Transmission Date: 20120825
  Serious: Yes (Death, Hospitalization, Other)
  Sender: FDA-Public Use
  Company Number: US-MYLANLABS-2009AL003464

PATIENT
  Sex: Male
  Weight: 64.41 kg

DRUGS (13)
  1. XALATAN [Concomitant]
  2. ZESTRIL [Concomitant]
  3. AVALIDE [Concomitant]
  4. AVAPRO [Concomitant]
  5. DIGOXIN [Suspect]
     Route: 048
     Dates: start: 20021116, end: 20070501
  6. LANTUS [Concomitant]
  7. ALTACE [Concomitant]
  8. AVANDARYL [Concomitant]
  9. INSULIN [Concomitant]
  10. LASIX [Concomitant]
  11. CIALIS [Concomitant]
  12. COREG [Concomitant]
  13. AZITHROMYCIN [Concomitant]

REACTIONS (51)
  - DEATH [None]
  - DIABETES MELLITUS INADEQUATE CONTROL [None]
  - PNEUMONIA [None]
  - ABDOMINAL PAIN UPPER [None]
  - JOINT CONTRACTURE [None]
  - PALLOR [None]
  - HEADACHE [None]
  - DYSPEPSIA [None]
  - CARDIOMYOPATHY [None]
  - ASPIRATION PLEURAL CAVITY [None]
  - CHILLS [None]
  - DIABETES MELLITUS [None]
  - COUGH [None]
  - MITRAL VALVE INCOMPETENCE [None]
  - CHEST X-RAY ABNORMAL [None]
  - HYPOREFLEXIA [None]
  - OROPHARYNGEAL PAIN [None]
  - UPPER RESPIRATORY TRACT INFECTION [None]
  - DIZZINESS [None]
  - CARDIAC FAILURE CONGESTIVE [None]
  - ANAEMIA [None]
  - CARDIAC MURMUR [None]
  - GLYCOSYLATED HAEMOGLOBIN INCREASED [None]
  - FATIGUE [None]
  - PNEUMONITIS [None]
  - BLOOD GLUCOSE INCREASED [None]
  - COMPUTERISED TOMOGRAM ABNORMAL [None]
  - CYST [None]
  - NOCTURIA [None]
  - DYSPNOEA [None]
  - AORTIC OCCLUSION [None]
  - ASTHENIA [None]
  - CARDIOMEGALY [None]
  - CONSTIPATION [None]
  - ECHOCARDIOGRAM ABNORMAL [None]
  - INSOMNIA [None]
  - OEDEMA PERIPHERAL [None]
  - HYPERTENSION [None]
  - ASTHMA [None]
  - LEFT VENTRICULAR HYPERTROPHY [None]
  - GYNAECOMASTIA [None]
  - MUSCLE ATROPHY [None]
  - PYREXIA [None]
  - RALES [None]
  - SENSORY DISTURBANCE [None]
  - NAUSEA [None]
  - HEART RATE IRREGULAR [None]
  - HYPOXIA [None]
  - PLEURAL EFFUSION [None]
  - RENAL FAILURE CHRONIC [None]
  - LUNG INFILTRATION [None]
